FAERS Safety Report 6902670-2 (Version None)
Quarter: 2010Q3

REPORT INFORMATION
  Report Type: 
  Country: None (occurrence: None)
  Receive Date: 20100803
  Receipt Date: 20080702
  Transmission Date: 20110219
  Serious: No
  Sender: FDA-Public Use
  Company Number: US-PFIZER INC-2008056127

PATIENT
  Sex: Male
  Weight: 93 kg

DRUGS (12)
  1. LYRICA [Suspect]
     Indication: PAIN IN EXTREMITY
     Route: 048
     Dates: start: 20080628
  2. LYRICA [Suspect]
     Indication: SCIATIC NERVE INJURY
  3. FLUCONAZOLE [Concomitant]
  4. ALL OTHER THERAPEUTIC PRODUCTS [Concomitant]
  5. ACTOS [Concomitant]
  6. FINASTERIDE [Concomitant]
  7. HYZAAR [Concomitant]
  8. GLIMEPIRIDE [Concomitant]
  9. NEXIUM [Concomitant]
  10. AMIODARONE HCL [Concomitant]
  11. LIPITOR [Concomitant]
  12. CYMBALTA [Concomitant]

REACTIONS (1)
  - BLOOD GLUCOSE INCREASED [None]
